FAERS Safety Report 7240616-0 (Version None)
Quarter: 2011Q1

REPORT INFORMATION
  Report Type: 
  Country: None (occurrence: None)
  Receive Date: 20110124
  Receipt Date: 20110113
  Transmission Date: 20110831
  Serious: Yes (Hospitalization)
  Sender: FDA-Public Use
  Company Number: US-ASTRAZENECA-2010SE60725

PATIENT
  Age: 56 Year
  Sex: Male
  Weight: 91.6 kg

DRUGS (2)
  1. SEROQUEL [Suspect]
     Indication: BIPOLAR DISORDER
     Route: 048
     Dates: start: 20070101
  2. NEURONTIN [Concomitant]

REACTIONS (4)
  - NASOPHARYNGITIS [None]
  - ALCOHOLISM [None]
  - INFLUENZA [None]
  - WEIGHT INCREASED [None]
